FAERS Safety Report 12167106 (Version 1)
Quarter: 2016Q1

REPORT INFORMATION
  Report Type: Spontaneous
  Country: US (occurrence: None)
  Receive Date: 20160309
  Receipt Date: 20160309
  Transmission Date: 20160526
  Serious: Yes (Other)
  Sender: FDA-Public Use
  Company Number: None

PATIENT
  Age: 71 Year
  Sex: Male
  Weight: 108.86 kg

DRUGS (4)
  1. SPIRIVA [Concomitant]
     Active Substance: TIOTROPIUM BROMIDE MONOHYDRATE
  2. ALBUTEROL. [Concomitant]
     Active Substance: ALBUTEROL
  3. NECITUMUMAB [Concomitant]
     Active Substance: NECITUMUMAB
  4. NECITUMUMAB LILLY [Suspect]
     Active Substance: NECITUMUMAB
     Indication: LUNG NEOPLASM MALIGNANT
     Dosage: 800 ML, EVERY 2 WEEKS, INTO A VEIN
     Dates: start: 20131108, end: 20160307

REACTIONS (2)
  - Hyperkeratosis [None]
  - Gait disturbance [None]

NARRATIVE: CASE EVENT DATE: 20160304
